FAERS Safety Report 18709142 (Version 1)
Quarter: 2021Q1

REPORT INFORMATION
  Report Type: Other
  Country: NL (occurrence: NL)
  Receive Date: 20210107
  Receipt Date: 20210107
  Transmission Date: 20210419
  Serious: Yes (Disabling)
  Sender: FDA-Public Use
  Company Number: NL-ROCHE-2743085

PATIENT
  Age: 64 Year
  Sex: Male

DRUGS (2)
  1. CAPECITABINE. [Suspect]
     Active Substance: CAPECITABINE
     Indication: COLON CANCER
     Route: 065
  2. OXALIPLATIN. [Suspect]
     Active Substance: OXALIPLATIN
     Indication: COLON CANCER
     Route: 041

REACTIONS (6)
  - Loss of personal independence in daily activities [Unknown]
  - Disturbance in attention [Unknown]
  - Impaired quality of life [Unknown]
  - Hiccups [Unknown]
  - Malaise [Unknown]
  - Fatigue [Unknown]
